FAERS Safety Report 11091405 (Version 1)
Quarter: 2015Q2

REPORT INFORMATION
  Report Type: Spontaneous
  Country: US (occurrence: US)
  Receive Date: 20150505
  Receipt Date: 20150505
  Transmission Date: 20150821
  Serious: Yes (Death)
  Sender: FDA-Public Use
  Company Number: US-PFIZER INC-2015150107

PATIENT
  Age: 4 Decade
  Sex: Female

DRUGS (1)
  1. IBRANCE [Suspect]
     Active Substance: PALBOCICLIB
     Indication: METASTATIC NEOPLASM
     Dosage: UNK
     Dates: start: 201502

REACTIONS (5)
  - Pleural effusion [Unknown]
  - Product use issue [Unknown]
  - Death [Fatal]
  - Disease progression [Unknown]
  - Metastatic neoplasm [Unknown]
